FAERS Safety Report 19885329 (Version 1)
Quarter: 2021Q3

REPORT INFORMATION
  Report Type: Other
  Country: FR (occurrence: FR)
  Receive Date: 20210927
  Receipt Date: 20210927
  Transmission Date: 20211014
  Serious: Yes (Hospitalization)
  Sender: FDA-Public Use
  Company Number: FR-CADILA HEALTHCARE LIMITED-FR-ZYDUS-070010

PATIENT

DRUGS (5)
  1. RISPERIDONE. [Suspect]
     Active Substance: RISPERIDONE
     Indication: DELIRIUM
     Dosage: 0.25 MILLIGRAM, QD
     Route: 048
     Dates: start: 20210827
  2. DULOXETINE. [Suspect]
     Active Substance: DULOXETINE
     Dosage: 30 MILLIGRAM
     Route: 048
     Dates: start: 20210825, end: 20210831
  3. TRAMADOL. [Suspect]
     Active Substance: TRAMADOL
     Indication: DEPRESSION
     Dosage: TRAMADOL 100 MG/ML
     Route: 048
     Dates: start: 20210826, end: 20210901
  4. TRAMADOL. [Suspect]
     Active Substance: TRAMADOL
     Dosage: TRAMADOL 100 MG/ML
     Route: 048
     Dates: start: 20210902, end: 20210910
  5. DULOXETINE. [Suspect]
     Active Substance: DULOXETINE
     Indication: DEPRESSION
     Dosage: 60 MILLIGRAM, QD
     Route: 048
     Dates: start: 20210901, end: 20210910

REACTIONS (1)
  - Serotonin syndrome [Recovering/Resolving]

NARRATIVE: CASE EVENT DATE: 20210910
